FAERS Safety Report 17129130 (Version 1)
Quarter: 2019Q4

REPORT INFORMATION
  Report Type: Spontaneous
  Country: US (occurrence: US)
  Receive Date: 20191209
  Receipt Date: 20191209
  Transmission Date: 20200122
  Serious: No
  Sender: FDA-Public Use
  Company Number: US-BAUSCH-BL-2019-061901

PATIENT
  Sex: Female

DRUGS (1)
  1. DEXAMETHASONE SODIUM PHOSPHATE OPHTHALMIC SOLUTION USP 0.1% [Suspect]
     Active Substance: DEXAMETHASONE SODIUM PHOSPHATE
     Indication: PRODUCT USED FOR UNKNOWN INDICATION
     Dosage: AS NEEDED
     Route: 065

REACTIONS (2)
  - Food craving [Not Recovered/Not Resolved]
  - Apathy [Unknown]

NARRATIVE: CASE EVENT DATE: 201911
